FAERS Safety Report 11766865 (Version 1)
Quarter: 2015Q4

REPORT INFORMATION
  Report Type: Spontaneous
  Country: US (occurrence: US)
  Receive Date: 20151123
  Receipt Date: 20151123
  Transmission Date: 20160304
  Serious: No
  Sender: FDA-Public Use
  Company Number: US-PAR PHARMACEUTICAL, INC-2015SCPR014077

PATIENT

DRUGS (3)
  1. PULMICORT TURBUHALER [Suspect]
     Active Substance: BUDESONIDE
     Dosage: 180 MCG TWO PUFFS TWICE DAILY
     Route: 055
     Dates: start: 20150527
  2. ACCOLATE [Suspect]
     Active Substance: ZAFIRLUKAST
     Indication: ASTHMA
     Dosage: UNK, UNKNOWN
     Route: 048
     Dates: start: 20150527
  3. PULMICORT TURBUHALER [Suspect]
     Active Substance: BUDESONIDE
     Indication: ASTHMA
     Dosage: 180 MCG TWO PUFFS TWICE DAILY
     Route: 055
     Dates: start: 20150527

REACTIONS (2)
  - Dyspnoea [Unknown]
  - Device malfunction [None]
